FAERS Safety Report 22070333 (Version 7)
Quarter: 2024Q2

REPORT INFORMATION
  Report Type: Spontaneous
  Country: KR (occurrence: KR)
  Receive Date: 20230307
  Receipt Date: 20240517
  Transmission Date: 20240716
  Serious: Yes (Other)
  Sender: FDA-Public Use
  Company Number: KR-PFIZER INC-PV202300041068

PATIENT
  Age: 60 Year
  Sex: Female

DRUGS (2)
  1. LORLATINIB [Suspect]
     Active Substance: LORLATINIB
     Dosage: 100 MG, 1X/DAY
     Route: 048
  2. LORLATINIB [Suspect]
     Active Substance: LORLATINIB
     Dosage: 100 MG, 1X/DAY(AT REGULAR TIMES FOR 100 DAYS)
     Dates: start: 20240430

REACTIONS (5)
  - Hepatitis [Unknown]
  - Chronic hepatitis [Unknown]
  - Bone disorder [Unknown]
  - Depression [Unknown]
  - Dermatitis contact [Unknown]
